FAERS Safety Report 17036691 (Version 1)
Quarter: 2019Q4

REPORT INFORMATION
  Report Type: Spontaneous
  Country: NL (occurrence: NL)
  Receive Date: 20191115
  Receipt Date: 20191115
  Transmission Date: 20200122
  Serious: Yes (Other)
  Sender: FDA-Public Use
  Company Number: NL-SA-2019SA316715

PATIENT

DRUGS (1)
  1. DUPIXENT [Suspect]
     Active Substance: DUPILUMAB

REACTIONS (4)
  - Hepatic lesion [Unknown]
  - Bone lesion [Unknown]
  - Blood lactate dehydrogenase increased [Unknown]
  - B-cell lymphoma [Unknown]
